FAERS Safety Report 4985210-7 (Version None)
Quarter: 2006Q2

REPORT INFORMATION
  Report Type: 
  Country: None (occurrence: None)
  Receive Date: 20060427
  Receipt Date: 20060420
  Transmission Date: 20061013
  Serious: Yes (Hospitalization)
  Sender: FDA-Public Use
  Company Number: ES-MERCK-0604ESP00036

PATIENT
  Age: 20 Month
  Sex: Male

DRUGS (3)
  1. SINGULAIR [Suspect]
     Indication: ASTHMA
     Route: 048
     Dates: start: 20051121, end: 20060301
  2. SINGULAIR [Suspect]
     Route: 048
     Dates: start: 20060401
  3. MONTELUKAST SODIUM [Concomitant]
     Indication: ASTHMA
     Route: 048
     Dates: start: 20050201, end: 20050601

REACTIONS (5)
  - BRONCHIOLITIS [None]
  - HYPERPHOSPHATAEMIA [None]
  - HYPOTHYROIDISM [None]
  - LOBAR PNEUMONIA [None]
  - PYREXIA [None]
